FAERS Safety Report 5018145-4 (Version None)
Quarter: 2006Q2

REPORT INFORMATION
  Report Type: 
  Country: None (occurrence: None)
  Receive Date: 20060530
  Receipt Date: 20050215
  Transmission Date: 20061013
  Serious: Yes (Other)
  Sender: FDA-Public Use
  Company Number: 2005032175

PATIENT
  Age: 74 Year
  Sex: Female
  Weight: 60 kg

DRUGS (7)
  1. LYRICA [Suspect]
     Indication: NEURALGIA
     Dosage: 150 MG (75 MG, 2 IN 1 D), ORAL
     Route: 048
     Dates: start: 20050106, end: 20050109
  2. SINEMET [Concomitant]
  3. PEPTAC (CALCIUM CARBONATE, SODIUM ALGINATE, SODIUM BICARBONATE) [Concomitant]
  4. SALBUTAMOL (SALBUTAMOL) [Concomitant]
  5. RISEDRONIC ACID (RISEDRONIC ACID) [Concomitant]
  6. LEKOVIT CA (CALCIUM CARBONATE, COLECALCIFEROL) [Concomitant]
  7. SYMBICORT TURBUHALER        (BUDESONIDE, FORMOTEROL FUMARATE) [Concomitant]

REACTIONS (6)
  - BALANCE DISORDER [None]
  - DIZZINESS [None]
  - DRY MOUTH [None]
  - HEADACHE [None]
  - NAUSEA [None]
  - SOMNOLENCE [None]
